FAERS Safety Report 8057280-3 (Version None)
Quarter: 2012Q1

REPORT INFORMATION
  Report Type: 
  Country: None (occurrence: None)
  Receive Date: 20120119
  Receipt Date: 20120117
  Transmission Date: 20120608
  Serious: Yes (Hospitalization, Other)
  Sender: FDA-Public Use
  Company Number: PHEH2005US10979

PATIENT
  Sex: Female
  Weight: 95.691 kg

DRUGS (18)
  1. CALCIUM [Concomitant]
  2. VIOXX [Concomitant]
  3. PEN-VEE K [Concomitant]
     Dates: start: 20051107
  4. AREDIA [Suspect]
     Dosage: 60 MG, ONCE/SINGLE
     Dates: start: 20040301
  5. MULTI-VITAMINS [Concomitant]
  6. PEN-VEE K [Concomitant]
     Dosage: 500 MG, UNK
     Route: 048
     Dates: start: 20030523
  7. DITROPAN [Concomitant]
  8. NICORETTE [Concomitant]
     Dates: start: 20000101
  9. VICODIN [Concomitant]
  10. AREDIA [Suspect]
     Indication: MULTIPLE MYELOMA
     Dosage: 90 MG, QMO
     Dates: start: 19980402
  11. NEURONTIN [Concomitant]
  12. COUMADIN [Concomitant]
  13. MS CONTIN [Concomitant]
     Dosage: 30 MG, BID
  14. LASIX [Concomitant]
  15. GLUCOTROL [Concomitant]
  16. MS CONTIN [Concomitant]
     Indication: PAIN
     Dosage: 300 MG, BID
     Dates: start: 19990615
  17. MIACALCIN [Concomitant]
  18. LORTAB [Concomitant]

REACTIONS (50)
  - BONE DISORDER [None]
  - PRIMARY SEQUESTRUM [None]
  - NAUSEA [None]
  - HYPERCALCAEMIA [None]
  - STAPHYLOCOCCAL INFECTION [None]
  - OSTEONECROSIS OF JAW [None]
  - BIOPSY BONE [None]
  - TYPE 2 DIABETES MELLITUS [None]
  - ELECTROLYTE IMBALANCE [None]
  - HYPERPARATHYROIDISM PRIMARY [None]
  - PNEUMONIA [None]
  - ACCIDENTAL OVERDOSE [None]
  - CHRONIC OBSTRUCTIVE PULMONARY DISEASE [None]
  - SOMNOLENCE [None]
  - VOMITING [None]
  - DIZZINESS [None]
  - NEPHROCALCINOSIS [None]
  - MOUTH ULCERATION [None]
  - INFLAMMATION [None]
  - BLOOD GLUCOSE INCREASED [None]
  - MYOCLONUS [None]
  - DISEASE PROGRESSION [None]
  - GINGIVITIS [None]
  - IMPAIRED HEALING [None]
  - TOOTH DISORDER [None]
  - GINGIVAL ULCERATION [None]
  - DEPRESSION [None]
  - DYSPNOEA [None]
  - ABDOMINAL PAIN [None]
  - POLYP [None]
  - RESPIRATORY TRACT INFECTION [None]
  - ABSCESS JAW [None]
  - SOFT TISSUE INFECTION [None]
  - NEOPLASM MALIGNANT [None]
  - HYPOXIA [None]
  - OSTEOMYELITIS [None]
  - DIARRHOEA [None]
  - COLITIS [None]
  - DIVERTICULITIS [None]
  - LETHARGY [None]
  - URINARY TRACT INFECTION [None]
  - BONE EROSION [None]
  - RENAL FAILURE ACUTE [None]
  - BLOOD CREATININE INCREASED [None]
  - BLOOD UREA INCREASED [None]
  - DEHYDRATION [None]
  - CHRONIC RESPIRATORY FAILURE [None]
  - MENTAL STATUS CHANGES [None]
  - BACK PAIN [None]
  - ANXIETY [None]
